FAERS Safety Report 8206310-4 (Version None)
Quarter: 2012Q1

REPORT INFORMATION
  Report Type: 
  Country: None (occurrence: None)
  Receive Date: 20120313
  Receipt Date: 20120306
  Transmission Date: 20120608
  Serious: Yes (Death, Hospitalization)
  Sender: FDA-Public Use
  Company Number: PHEH2011US011047

PATIENT
  Sex: Female
  Weight: 97.3 kg

DRUGS (8)
  1. VITAMIN D [Concomitant]
     Dosage: 01 DF, BID
  2. LOPRESSOR [Concomitant]
     Dosage: 100 MG, BID
  3. VITAMIN B-12 [Concomitant]
  4. METFORMIN HCL [Concomitant]
     Dosage: 500 MG, BID
  5. CALCIUM [Concomitant]
  6. MULTI-VITAMINS [Concomitant]
  7. GLEEVEC [Suspect]
     Indication: CHRONIC MYELOID LEUKAEMIA
     Dosage: 400 MG, DAILY
     Route: 048
     Dates: start: 20110808
  8. LEVOTHYROXINE SODIUM [Concomitant]
     Dosage: 175 UG, UNK

REACTIONS (36)
  - HAEMORRHAGE INTRACRANIAL [None]
  - HYPOTENSION [None]
  - LYMPH NODE PALPABLE [None]
  - PETECHIAE [None]
  - MALAISE [None]
  - PYREXIA [None]
  - DEATH [None]
  - BRADYCARDIA [None]
  - DYSPNOEA [None]
  - BRAIN HERNIATION [None]
  - HYPOPHAGIA [None]
  - VOMITING [None]
  - WEIGHT DECREASED [None]
  - CONSTIPATION [None]
  - WHITE BLOOD CELL COUNT INCREASED [None]
  - RESPIRATORY ARREST [None]
  - UNRESPONSIVE TO STIMULI [None]
  - PAIN IN EXTREMITY [None]
  - APNOEA [None]
  - HYDROCEPHALUS [None]
  - LYMPHADENOPATHY [None]
  - CARDIAC ARREST [None]
  - MENTAL STATUS CHANGES [None]
  - HAEMOGLOBIN DECREASED [None]
  - ASTHENIA [None]
  - NIGHT SWEATS [None]
  - VISUAL ACUITY REDUCED [None]
  - LETHARGY [None]
  - INTRACRANIAL HAEMATOMA [None]
  - NECK PAIN [None]
  - FATIGUE [None]
  - NAUSEA [None]
  - BLAST CRISIS IN MYELOGENOUS LEUKAEMIA [None]
  - BRAIN OEDEMA [None]
  - HAEMATOCRIT DECREASED [None]
  - GINGIVAL BLEEDING [None]
